FAERS Safety Report 24226459 (Version 1)
Quarter: 2024Q3

REPORT INFORMATION
  Report Type: Spontaneous
  Country: GB (occurrence: GB)
  Receive Date: 20240820
  Receipt Date: 20240820
  Transmission Date: 20241016
  Serious: Yes (Other)
  Sender: ALKEM
  Company Number: None

PATIENT
  Age: 39 Year
  Sex: Female

DRUGS (4)
  1. ERYTHROMYCIN [Interacting]
     Active Substance: ERYTHROMYCIN
     Indication: Product used for unknown indication
     Dosage: UNK
     Route: 065
  2. QUETIAPINE FUMARATE [Suspect]
     Active Substance: QUETIAPINE FUMARATE
     Indication: Post-traumatic stress disorder
     Dosage: UNK
     Route: 065
     Dates: start: 20240701
  3. FLUOXETINE [Interacting]
     Active Substance: FLUOXETINE HYDROCHLORIDE
     Indication: Product used for unknown indication
     Dosage: UNK
     Route: 065
  4. PREGABALIN [Concomitant]
     Active Substance: PREGABALIN
     Indication: Post-traumatic stress disorder
     Dosage: UNK
     Route: 065

REACTIONS (6)
  - Hypertension [Recovering/Resolving]
  - Serotonin syndrome [Unknown]
  - Anxiety [Recovering/Resolving]
  - Hyperhidrosis [Recovering/Resolving]
  - Headache [Unknown]
  - Drug interaction [Unknown]

NARRATIVE: CASE EVENT DATE: 20160101
